FAERS Safety Report 6326175-5 (Version None)
Quarter: 2009Q3

REPORT INFORMATION
  Report Type: 
  Country: None (occurrence: None)
  Receive Date: 20090824
  Receipt Date: 20090824
  Transmission Date: 20100115
  Serious: Yes (Other)
  Sender: FDA-Public Use
  Company Number: US-PFIZER INC-2009237702

PATIENT
  Sex: Male

DRUGS (8)
  1. GEODON [Suspect]
     Indication: ANXIETY
     Dosage: UNK
     Route: 030
     Dates: start: 20090701, end: 20090701
  2. SOLU-CORTEF [Concomitant]
     Dosage: UNK
  3. TYLENOL (CAPLET) [Concomitant]
     Dosage: UNK
  4. VANCOMYCIN [Concomitant]
     Dosage: UNK
  5. ROCEPHIN [Concomitant]
     Dosage: UNK
  6. AMPICILLIN [Concomitant]
     Dosage: UNK
  7. ZOVIRAX [Concomitant]
     Dosage: UNK
  8. HALDOL [Concomitant]
     Dosage: UNK

REACTIONS (2)
  - ENDOTRACHEAL INTUBATION [None]
  - MEDICATION ERROR [None]
